FAERS Safety Report 18771168 (Version 1)
Quarter: 2021Q1

REPORT INFORMATION
  Report Type: Spontaneous
  Country: US (occurrence: US)
  Receive Date: 20210122
  Receipt Date: 20210122
  Transmission Date: 20210419
  Serious: No
  Sender: FDA-Public Use
  Company Number: US-AMGEN-USASP2021003585

PATIENT
  Age: 59 Year
  Sex: Female
  Weight: 68.5 kg

DRUGS (2)
  1. NEUPOGEN [Suspect]
     Active Substance: FILGRASTIM
     Indication: NEUTROPENIA
     Dosage: UNK
     Route: 065
  2. NEULASTA [Suspect]
     Active Substance: PEGFILGRASTIM
     Indication: NEUTROPENIA
     Dosage: UNK UNK, AFTER CHEMO
     Route: 065

REACTIONS (3)
  - Bone pain [Recovered/Resolved]
  - Refusal of treatment by patient [Unknown]
  - Pain [Recovered/Resolved]

NARRATIVE: CASE EVENT DATE: 202012
